FAERS Safety Report 5931521-8 (Version None)
Quarter: 2008Q4

REPORT INFORMATION
  Report Type: 
  Country: None (occurrence: None)
  Receive Date: 20081027
  Receipt Date: 20081017
  Transmission Date: 20090506
  Serious: Yes (Hospitalization)
  Sender: FDA-Public Use
  Company Number: A0753581A

PATIENT
  Age: 61 Year
  Sex: Male

DRUGS (1)
  1. AVANDARYL [Suspect]
     Dosage: 4MG TWICE PER DAY
     Route: 048

REACTIONS (2)
  - HEART INJURY [None]
  - MYOCARDIAL INFARCTION [None]
